FAERS Safety Report 16542581 (Version 1)
Quarter: 2019Q3

REPORT INFORMATION
  Report Type: Spontaneous
  Country: NL (occurrence: NL)
  Receive Date: 20190709
  Receipt Date: 20190709
  Transmission Date: 20191004
  Serious: Yes (Other)
  Sender: FDA-Public Use
  Company Number: NL-AUROBINDO-AUR-APL-2019-038235

PATIENT

DRUGS (3)
  1. PAROXETINE 20MG [Suspect]
     Active Substance: PAROXETINE
     Indication: ANTIDEPRESSANT THERAPY
     Dosage: 20 MILLIGRAM FORM A YEAR
     Route: 065
  2. PAROXETINE 20MG [Suspect]
     Active Substance: PAROXETINE
     Indication: DEPRESSION
     Dosage: 10 MILLIGRAM FOR A WEEK
     Route: 065
  3. PAROXETINE 20MG [Suspect]
     Active Substance: PAROXETINE
     Indication: ANXIETY
     Dosage: 5 MILLIGRAM FOR A WEEK

REACTIONS (2)
  - Weight increased [Recovered/Resolved]
  - Withdrawal syndrome [Recovered/Resolved]
